FAERS Safety Report 8105611-8 (Version None)
Quarter: 2012Q1

REPORT INFORMATION
  Report Type: 
  Country: None (occurrence: None)
  Receive Date: 20120201
  Receipt Date: 20120125
  Transmission Date: 20120608
  Serious: Yes (Hospitalization, Other)
  Sender: FDA-Public Use
  Company Number: US-US-EMD SERONO, INC.-7028674

PATIENT
  Sex: Female
  Weight: 100 kg

DRUGS (3)
  1. REBIF [Suspect]
     Indication: MULTIPLE SCLEROSIS
     Route: 058
     Dates: start: 20091001, end: 20101014
  2. REBIF [Suspect]
     Route: 058
     Dates: start: 20101130, end: 20111201
  3. BUPROPION HYDROCHLORIDE [Concomitant]
     Indication: FIBROMYALGIA

REACTIONS (4)
  - SUICIDAL BEHAVIOUR [None]
  - IRRITABILITY [None]
  - DECREASED IMMUNE RESPONSIVENESS [None]
  - STAPHYLOCOCCAL INFECTION [None]
